FAERS Safety Report 5148939-6 (Version None)
Quarter: 2006Q4

REPORT INFORMATION
  Report Type: 
  Country: None (occurrence: None)
  Receive Date: 20061113
  Receipt Date: 20060915
  Transmission Date: 20070319
  Serious: Yes (Hospitalization, Other)
  Sender: FDA-Public Use
  Company Number: PHBS2006JP14413

PATIENT
  Age: 1 Year
  Sex: Male

DRUGS (1)
  1. VOLTAREN [Suspect]
     Indication: PYREXIA
     Dosage: 50 MG/DAY
     Route: 054
     Dates: start: 20060914, end: 20060914

REACTIONS (2)
  - BODY TEMPERATURE DECREASED [None]
  - OVERDOSE [None]
